FAERS Safety Report 7663505 (Version 10)
Quarter: 2013Q2

REPORT INFORMATION
  Report Type: Spontaneous
  Country: CA (occurrence: CA)
  Receive Date: 20101110
  Receipt Date: 20130401
  Transmission Date: 20140414
  Serious: Yes (Other)
  Sender: FDA-Public Use
  Company Number: PHHY2010CA73140

PATIENT
  Sex: Male

DRUGS (8)
  1. EXJADE [Suspect]
     Indication: MYELODYSPLASTIC SYNDROME
     Dosage: 1500 MG, QD
     Route: 048
     Dates: start: 200912
  2. EXJADE [Suspect]
     Dosage: 1500 MG, QD
     Route: 048
     Dates: start: 20101023
  3. EXJADE [Suspect]
     Dosage: 1375 MG, UNK
  4. ZANTAC [Concomitant]
  5. DIGOXIN [Concomitant]
  6. ATIVAN [Concomitant]
  7. FUROSEMIDE [Concomitant]
  8. BLOOD TRANSFUSION, AUXILIARY PRODUCTS [Concomitant]

REACTIONS (13)
  - Hernia [Unknown]
  - Angina pectoris [Unknown]
  - Bronchitis [Recovered/Resolved]
  - Myelodysplastic syndrome [Unknown]
  - Malignant neoplasm progression [Unknown]
  - General physical health deterioration [Unknown]
  - Gastrointestinal mucosal exfoliation [Unknown]
  - Blood pressure decreased [Unknown]
  - Blood iron abnormal [Unknown]
  - Diarrhoea [Unknown]
  - Serum ferritin abnormal [Not Recovered/Not Resolved]
  - Serum ferritin increased [Unknown]
  - Drug ineffective [Unknown]
